FAERS Safety Report 7368801-8 (Version None)
Quarter: 2011Q1

REPORT INFORMATION
  Report Type: 
  Country: None (occurrence: None)
  Receive Date: 20110323
  Receipt Date: 20110314
  Transmission Date: 20110831
  Serious: Yes (Other)
  Sender: FDA-Public Use
  Company Number: SV-ELI_LILLY_AND_COMPANY-SV201103004954

PATIENT
  Age: 83 Year
  Sex: Female

DRUGS (4)
  1. RALOXIFENE HYDROCHLORIDE [Suspect]
     Indication: OSTEOPOROSIS
     Dosage: 60 MG, DAILY (1/D)
     Route: 065
     Dates: start: 20090701
  2. TOLTERODINE TARTRATE [Concomitant]
  3. BLOPRESS [Concomitant]
  4. CONTROLIP [Concomitant]

REACTIONS (2)
  - FALL [None]
  - BREAST CANCER [None]
